FAERS Safety Report 13650765 (Version 2)
Quarter: 2018Q2

REPORT INFORMATION
  Report Type: Spontaneous
  Country: US (occurrence: US)
  Receive Date: 20170614
  Receipt Date: 20180530
  Transmission Date: 20180711
  Serious: No
  Sender: FDA-Public Use
  Company Number: US-ENDO PHARMACEUTICALS INC-2017-002743

PATIENT
  Age: 16 Year
  Sex: Female
  Weight: 43 kg

DRUGS (1)
  1. SUPPRELIN LA [Suspect]
     Active Substance: HISTRELIN ACETATE
     Indication: PRECOCIOUS PUBERTY
     Dosage: UNK SECOND IMPLANT,
     Route: 058
     Dates: start: 2009

REACTIONS (3)
  - Menstruation irregular [Not Recovered/Not Resolved]
  - Incorrect drug administration duration [Not Recovered/Not Resolved]
  - Puberty [Recovered/Resolved]

NARRATIVE: CASE EVENT DATE: 2010
